FAERS Safety Report 20128722 (Version 1)
Quarter: 2021Q4

REPORT INFORMATION
  Report Type: Spontaneous
  Country: US (occurrence: US)
  Receive Date: 20211130
  Receipt Date: 20211130
  Transmission Date: 20220303
  Serious: Yes (Other)
  Sender: FDA-Public Use
  Company Number: US-SA-SAC20211126001088

PATIENT
  Age: 60 Year
  Sex: Male

DRUGS (2)
  1. ZANTAC [Suspect]
     Active Substance: RANITIDINE HYDROCHLORIDE
     Indication: Gastrooesophageal reflux disease
     Dosage: 75 MG, QD
     Dates: start: 200601
  2. ZANTAC [Suspect]
     Active Substance: RANITIDINE HYDROCHLORIDE
     Indication: Dyspepsia
     Dosage: 150 MG, QD
     Dates: end: 202001

REACTIONS (2)
  - Colorectal cancer stage II [Recovering/Resolving]
  - Gastrointestinal carcinoma [Recovering/Resolving]

NARRATIVE: CASE EVENT DATE: 20090901
